FAERS Safety Report 5885234-1 (Version None)
Quarter: 2008Q3

REPORT INFORMATION
  Report Type: 
  Country: None (occurrence: None)
  Receive Date: 20080916
  Receipt Date: 20080906
  Transmission Date: 20090109
  Serious: Yes (Hospitalization, Other)
  Sender: FDA-Public Use
  Company Number: GB-ALLERGAN-0809874US

PATIENT
  Sex: Female

DRUGS (5)
  1. BOTOX [Suspect]
     Indication: INCONTINENCE
     Dosage: 200 UNITS, SINGLE
     Route: 043
  2. BOTOX [Suspect]
     Dosage: 200 UNITS, SINGLE
     Route: 043
     Dates: start: 20080201, end: 20080201
  3. BOTOX [Suspect]
     Dosage: 200 UNITS, SINGLE
     Route: 043
  4. FENTANYL [Concomitant]
     Indication: ANAESTHESIA
  5. PROPOFOL [Concomitant]
     Indication: ANAESTHESIA

REACTIONS (8)
  - ABDOMINAL PAIN UPPER [None]
  - ABNORMAL FAECES [None]
  - BILIARY COLIC [None]
  - CHROMATURIA [None]
  - HEPATITIS CHRONIC ACTIVE [None]
  - JAUNDICE [None]
  - NAUSEA [None]
  - VOMITING [None]
